FAERS Safety Report 7287497-7 (Version None)
Quarter: 2011Q1

REPORT INFORMATION
  Report Type: 
  Country: None (occurrence: None)
  Receive Date: 20110211
  Receipt Date: 20110209
  Transmission Date: 20110831
  Serious: Yes (Other)
  Sender: FDA-Public Use
  Company Number: IN-BRISTOL-MYERS SQUIBB COMPANY-15533458

PATIENT
  Age: 20 Year
  Sex: Female

DRUGS (3)
  1. RISPERIDONE [Concomitant]
     Indication: SCHIZOPHRENIA
     Dosage: DOSE REDUCED TO 3MG/D ON APR2008 AND INCREASED TO 3.5MG/D
  2. METFORMIN HCL [Suspect]
     Dosage: INTER,RESTARTED AND INCREASED DOSE TO 500MG/D
     Dates: start: 20080501
  3. TRIHEXYPHENIDYL [Concomitant]
     Indication: SCHIZOPHRENIA

REACTIONS (1)
  - PSYCHOTIC DISORDER [None]
